FAERS Safety Report 5973340-2 (Version None)
Quarter: 2008Q4

REPORT INFORMATION
  Report Type: 
  Country: None (occurrence: None)
  Receive Date: 20081201
  Receipt Date: 20081120
  Transmission Date: 20090506
  Serious: Yes (Hospitalization, Congenital Anomaly)
  Sender: FDA-Public Use
  Company Number: US-KINGPHARMUSA00001-K200801331

PATIENT
  Sex: Female
  Weight: 1.545 kg

DRUGS (9)
  1. ALTACE [Suspect]
     Dosage: UNK, FROM 11-27 WEEKS GESTATION
     Route: 064
  2. ATACAND [Suspect]
     Dosage: UNK, SINCE 27 WEEKS GESTATION
     Route: 064
  3. KALITABS [Concomitant]
     Dosage: UNK
     Route: 064
  4. SPIRONOLACTONE [Concomitant]
     Dosage: UNK
     Route: 064
  5. FRAGMIN                            /01708302/ [Concomitant]
     Dosage: UNK
     Route: 064
  6. PANTOLOC                           /01263201/ [Concomitant]
     Dosage: UNK
     Route: 064
  7. LASIX [Suspect]
     Dosage: UNK
     Route: 064
  8. METOPROLOL TARTRATE [Suspect]
     Dosage: UNK
     Route: 064
  9. DIGOXIN [Concomitant]
     Dosage: UNK
     Route: 064

REACTIONS (9)
  - ANURIA [None]
  - BLINDNESS UNILATERAL [None]
  - DRUG EXPOSURE DURING PREGNANCY [None]
  - HYPOTENSION [None]
  - MALAISE [None]
  - NYSTAGMUS [None]
  - OLIGOHYDRAMNIOS [None]
  - PREMATURE BABY [None]
  - RETINOPATHY OF PREMATURITY [None]
